FAERS Safety Report 5742887-6 (Version None)
Quarter: 2008Q2

REPORT INFORMATION
  Report Type: 
  Country: None (occurrence: None)
  Receive Date: 20080519
  Receipt Date: 20080513
  Transmission Date: 20081010
  Serious: Yes (Other)
  Sender: FDA-Public Use
  Company Number: GR-AVENTIS-200814464GDDC

PATIENT
  Age: 66 Year
  Sex: Female

DRUGS (7)
  1. TAXOTERE [Suspect]
     Indication: BREAST CANCER
     Route: 042
     Dates: start: 20071010, end: 20071114
  2. TAXOTERE [Suspect]
     Dosage: DOSE: ??
     Dates: start: 20071128, end: 20071205
  3. ZOFRON                             /00955301/ [Concomitant]
  4. ZANTAC [Concomitant]
  5. FENISTIL [Concomitant]
  6. DEXAMETHASONE [Concomitant]
  7. NEUPOGEN [Concomitant]

REACTIONS (4)
  - FATIGUE [None]
  - HYPERURICAEMIA [None]
  - HYPOKALAEMIA [None]
  - NAUSEA [None]
